FAERS Safety Report 6122756-2 (Version None)
Quarter: 2009Q1

REPORT INFORMATION
  Report Type: 
  Country: None (occurrence: None)
  Receive Date: 20090318
  Receipt Date: 20081212
  Transmission Date: 20090719
  Serious: No
  Sender: FDA-Public Use
  Company Number: US-AMGEN-KDL323663

PATIENT

DRUGS (3)
  1. NEULASTA [Suspect]
     Indication: CHEMOTHERAPY
  2. ARANESP [Suspect]
     Indication: MYELODYSPLASTIC SYNDROME
  3. AZACITIDINE [Concomitant]

REACTIONS (3)
  - MENTAL STATUS CHANGES [None]
  - PLATELET COUNT INCREASED [None]
  - PYREXIA [None]
